FAERS Safety Report 23442291 (Version 2)
Quarter: 2024Q4

REPORT INFORMATION
  Report Type: Spontaneous
  Country: US (occurrence: US)
  Receive Date: 20240125
  Receipt Date: 20241125
  Transmission Date: 20250115
  Serious: Yes (Other)
  Sender: LABORATOIRES SERB
  Company Number: US-SERB S.A.S.-2151960

PATIENT
  Age: 81 Year
  Sex: Male

DRUGS (1)
  1. DIGIFAB [Suspect]
     Active Substance: OVINE DIGOXIN IMMUNE FAB
     Indication: Toxicity to various agents

REACTIONS (4)
  - Pneumonia aspiration [Unknown]
  - Drug ineffective [Unknown]
  - Hyperkalaemia [Unknown]
  - Acute kidney injury [Unknown]
